FAERS Safety Report 4662905-6 (Version None)
Quarter: 2005Q2

REPORT INFORMATION
  Report Type: 
  Country: None (occurrence: None)
  Receive Date: 20050511
  Receipt Date: 20050413
  Transmission Date: 20051028
  Serious: Yes (Other)
  Sender: FDA-Public Use
  Company Number: 402066

PATIENT
  Age: 48 Year
  Sex: Male

DRUGS (2)
  1. PEGASYS [Suspect]
     Indication: HEPATITIS C
     Dosage: 180 MCG 1 PER WEEK, SUBCUTANEOUS
     Route: 058
     Dates: start: 20050309, end: 20050406
  2. COPEGUS [Suspect]
     Indication: HEPATITIS C
     Dosage: 5 PER DAY, ORAL
     Route: 048
     Dates: start: 20050309

REACTIONS (5)
  - CHILLS [None]
  - PAIN [None]
  - PHARYNGOLARYNGEAL PAIN [None]
  - PYREXIA [None]
  - WHITE BLOOD CELL COUNT DECREASED [None]
